FAERS Safety Report 7827086-6 (Version None)
Quarter: 2011Q4

REPORT INFORMATION
  Report Type: 
  Country: None (occurrence: None)
  Receive Date: 20111020
  Receipt Date: 20111014
  Transmission Date: 20120403
  Serious: Yes (Other)
  Sender: FDA-Public Use
  Company Number: GB-JNJFOC-20101003832

PATIENT
  Sex: Male
  Weight: 84 kg

DRUGS (5)
  1. USTEKINUMAB [Suspect]
     Route: 058
     Dates: start: 20100930
  2. VASELINE INTENSIVE CARE [Concomitant]
     Indication: PSORIASIS
     Route: 061
  3. USTEKINUMAB [Suspect]
     Indication: PSORIASIS
     Route: 058
     Dates: start: 20060824
  4. USTEKINUMAB [Suspect]
     Route: 058
     Dates: start: 20110216
  5. USTEKINUMAB [Suspect]
     Route: 058
     Dates: start: 20110511

REACTIONS (1)
  - LIVER FUNCTION TEST ABNORMAL [None]
